FAERS Safety Report 4785819-X (Version None)
Quarter: 2005Q3

REPORT INFORMATION
  Report Type: 
  Country: None (occurrence: None)
  Receive Date: 20050927
  Receipt Date: 20050920
  Transmission Date: 20060218
  Serious: Yes (Life-Threatening)
  Sender: FDA-Public Use
  Company Number: 200511667BBE

PATIENT
  Age: 81 Year
  Sex: Female

DRUGS (1)
  1. GAMIMUNE N 10% [Suspect]
     Dosage: 60 G, TOTAL DAILY, INTRAVENOUS
     Route: 042
     Dates: start: 20050802

REACTIONS (6)
  - ATRIAL FIBRILLATION [None]
  - BLOOD PRESSURE INCREASED [None]
  - CHILLS [None]
  - CYANOSIS [None]
  - INFUSION RELATED REACTION [None]
  - PALLOR [None]
